FAERS Safety Report 5382694-X (Version None)
Quarter: 2007Q3

REPORT INFORMATION
  Report Type: 
  Country: None (occurrence: None)
  Receive Date: 20070710
  Receipt Date: 20070629
  Transmission Date: 20080115
  Serious: Yes (Other)
  Sender: FDA-Public Use
  Company Number: DE-JNJFOC-20070700242

PATIENT
  Sex: Female

DRUGS (3)
  1. REMICADE [Suspect]
     Dosage: MOST RECENT INFUSION ^ABOUT 6 TO 8 WEEKS AGO^
     Route: 042
  2. REMICADE [Suspect]
     Indication: DRUG USE FOR UNKNOWN INDICATION
     Dosage: INITIATED ONE YEAR AGO
     Route: 042
  3. ACTONEL [Suspect]
     Indication: OSTEOPOROSIS

REACTIONS (1)
  - JAW FRACTURE [None]
